FAERS Safety Report 9656003 (Version 3)
Quarter: 2014Q1

REPORT INFORMATION
  Report Type: Spontaneous
  Country: US (occurrence: US)
  Receive Date: 20131030
  Receipt Date: 20140314
  Transmission Date: 20141002
  Serious: Yes (Hospitalization)
  Sender: FDA-Public Use
  Company Number: US-JNJFOC-20131015244

PATIENT
  Age: 13 Year
  Sex: Female

DRUGS (5)
  1. INFLIXIMAB, RECOMBINANT [Suspect]
     Indication: JUVENILE IDIOPATHIC ARTHRITIS
     Dosage: HIGH DOSE GREATER THAN OR EQUAL TO 10 MG/KG
     Route: 042
     Dates: start: 20100302, end: 20120118
  2. FLUOXETINE [Concomitant]
     Route: 065
  3. ABILIFY [Concomitant]
     Route: 065
  4. ADDERALL [Concomitant]
     Route: 065
  5. LEFLUNOMIDE [Concomitant]
     Route: 065

REACTIONS (1)
  - Mental disorder [Unknown]
